FAERS Safety Report 18866468 (Version 1)
Quarter: 2021Q1

REPORT INFORMATION
  Report Type: Spontaneous
  Country: US (occurrence: US)
  Receive Date: 20210209
  Receipt Date: 20210209
  Transmission Date: 20210420
  Serious: Yes (Life-Threatening, Hospitalization, Other)
  Sender: FDA-Public Use
  Company Number: None

PATIENT
  Age: 53 Year
  Sex: Male
  Weight: 209.25 kg

DRUGS (11)
  1. CASIRIVIMAB. [Suspect]
     Active Substance: CASIRIVIMAB
     Indication: CORONAVIRUS INFECTION
     Dosage: ?          OTHER FREQUENCY:1 TIME DOSE;?
     Route: 041
     Dates: start: 20210208, end: 20210208
  2. FENOFIBRATE 480MG TAB QD [Concomitant]
  3. METOPROLOL TARTRATE 100MG TAB BID [Concomitant]
  4. INSULIN REGULAR 120 UNITS BID [Concomitant]
  5. FUROSEMIDE 40MG TAB BID [Concomitant]
  6. IMDEVIMAB. [Suspect]
     Active Substance: IMDEVIMAB
     Indication: CORONAVIRUS INFECTION
     Dosage: ?          OTHER FREQUENCY:1 TIME DOSE;?
     Route: 041
     Dates: start: 20210208, end: 20210208
  7. ATROVASTATIN 80MG TAB QD [Concomitant]
  8. PIOGLITAZONE 30MG TAB [Concomitant]
  9. LOSARTAN 50MG TAB QD [Concomitant]
  10. NIACIN 1000MG TAB BID [Concomitant]
  11. TERAZOSIN 10MG CAP HS [Concomitant]

REACTIONS (3)
  - Oxygen saturation decreased [None]
  - General physical health deterioration [None]
  - Condition aggravated [None]

NARRATIVE: CASE EVENT DATE: 20210208
